FAERS Safety Report 8802820 (Version 1)
Quarter: 2012Q4

REPORT INFORMATION
  Report Type: 
  Country: US (occurrence: US)
  Receive Date: 20120921
  Receipt Date: 20120921
  Transmission Date: 20130627
  Serious: Yes (Other)
  Sender: FDA-Public Use
  Company Number: US-009507513-1209USA005922

PATIENT
  Age: 43 Year
  Sex: Male

DRUGS (4)
  1. SAPHRIS [Suspect]
     Dosage: 10 mg, Once
     Route: 048
  2. NEURONTIN [Concomitant]
  3. KLONOPIN [Concomitant]
  4. SEROQUEL [Concomitant]

REACTIONS (2)
  - Immobile [Unknown]
  - Anxiety [Unknown]
